FAERS Safety Report 13166277 (Version 1)
Quarter: 2017Q1

REPORT INFORMATION
  Report Type: Spontaneous
  Country: US (occurrence: US)
  Receive Date: 20170127
  Receipt Date: 20170127
  Transmission Date: 20170428
  Serious: No
  Sender: FDA-Public Use
  Company Number: None

PATIENT
  Age: 55 Year
  Sex: Male

DRUGS (1)
  1. HARVONI [Suspect]
     Active Substance: LEDIPASVIR\SOFOSBUVIR
     Indication: ACUTE HEPATITIS C

REACTIONS (4)
  - Pollakiuria [None]
  - Fatigue [None]
  - Abdominal discomfort [None]
  - Frequent bowel movements [None]

NARRATIVE: CASE EVENT DATE: 20170127
